FAERS Safety Report 18588322 (Version 1)
Quarter: 2020Q4

REPORT INFORMATION
  Report Type: Spontaneous
  Country: US (occurrence: US)
  Receive Date: 20201207
  Receipt Date: 20201207
  Transmission Date: 20210114
  Serious: No
  Sender: FDA-Public Use
  Company Number: US-JUBILANT CADISTA PHARMACEUTICALS-2020JUB00148

PATIENT
  Sex: Male
  Weight: 97.51 kg

DRUGS (2)
  1. METHYLPREDNISOLONE. [Suspect]
     Active Substance: METHYLPREDNISOLONE
     Indication: ADRENAL INSUFFICIENCY
     Dosage: 8 MG, 1X/DAY
     Route: 048
  2. TESTOSTERONE CYPIONATE. [Concomitant]
     Active Substance: TESTOSTERONE CYPIONATE
     Dosage: 200 MG (1 ML), 1X/WEEK

REACTIONS (2)
  - Product dispensing error [Not Recovered/Not Resolved]
  - Drug ineffective [Not Recovered/Not Resolved]
